FAERS Safety Report 5218488-5 (Version None)
Quarter: 2006Q4

REPORT INFORMATION
  Report Type: 
  Country: None (occurrence: None)
  Receive Date: 20061121
  Receipt Date: 20060929
  Transmission Date: 20070319
  Serious: No
  Sender: FDA-Public Use
  Company Number: TPA2006A01697

PATIENT
  Age: 79 Year
  Sex: Male
  Weight: 99.7913 kg

DRUGS (5)
  1. ROZEREM [Suspect]
     Indication: INSOMNIA
     Dosage: 8 MG, PER ORAL
     Route: 048
     Dates: start: 20060901, end: 20060901
  2. ATENOLOL [Concomitant]
  3. LANOXIN [Concomitant]
  4. POTASSIUM CHLORIDE [Concomitant]
  5. FUROSEMIDE [Concomitant]

REACTIONS (3)
  - DIZZINESS [None]
  - SOMNOLENCE [None]
  - THERAPEUTIC RESPONSE INCREASED [None]
